FAERS Safety Report 6673432-9 (Version None)
Quarter: 2010Q2

REPORT INFORMATION
  Report Type: 
  Country: None (occurrence: None)
  Receive Date: 20100408
  Receipt Date: 20100326
  Transmission Date: 20101027
  Serious: Yes (Other)
  Sender: FDA-Public Use
  Company Number: JP-PFIZER INC-2010034038

PATIENT
  Age: 6 Month
  Sex: Male

DRUGS (1)
  1. ZITHROMAX [Suspect]
     Dosage: 85 MG/DAY
     Dates: start: 20100310, end: 20100312

REACTIONS (2)
  - PALLOR [None]
  - PERIPHERAL COLDNESS [None]
